FAERS Safety Report 13708937 (Version 1)
Quarter: 2017Q2

REPORT INFORMATION
  Report Type: Spontaneous
  Country: US (occurrence: US)
  Receive Date: 20170630
  Receipt Date: 20170630
  Transmission Date: 20170830
  Serious: No
  Sender: FDA-Public Use
  Company Number: US-IPSEN BIOPHARMACEUTICALS, INC.-2016-03130

PATIENT
  Age: 55 Year
  Sex: Male
  Weight: 65.72 kg

DRUGS (2)
  1. MULTIVITAMINS [Concomitant]
     Active Substance: VITAMINS
  2. SOMATULINE DEPOT [Suspect]
     Active Substance: LANREOTIDE ACETATE
     Indication: ACROMEGALY
     Dosage: 120 MG
     Route: 058
     Dates: start: 20160215

REACTIONS (2)
  - Injection site pruritus [Recovered/Resolved]
  - Injection site mass [Not Recovered/Not Resolved]

NARRATIVE: CASE EVENT DATE: 201602
